FAERS Safety Report 20229357 (Version 1)
Quarter: 2021Q4

REPORT INFORMATION
  Report Type: Spontaneous
  Country: FR (occurrence: FR)
  Receive Date: 20211225
  Receipt Date: 20211225
  Transmission Date: 20220303
  Serious: Yes (Other)
  Sender: FDA-Public Use
  Company Number: None

PATIENT
  Age: 64 Year
  Sex: Female
  Weight: 130 kg

DRUGS (2)
  1. AMOXICILLIN [Suspect]
     Active Substance: AMOXICILLIN
     Indication: Splenectomy
     Dosage: UNK
     Route: 048
     Dates: start: 20210924, end: 20210930
  2. PENICILLIN V [Suspect]
     Active Substance: PENICILLIN V
     Indication: Splenectomy
     Dosage: UNK (FROM 30 SEP 2021)
     Route: 048
     Dates: end: 20211006

REACTIONS (3)
  - Eosinophilia [Recovering/Resolving]
  - Urticaria [Recovered/Resolved]
  - Condition aggravated [Recovered/Resolved]

NARRATIVE: CASE EVENT DATE: 20210925
